FAERS Safety Report 6402703-6 (Version None)
Quarter: 2009Q4

REPORT INFORMATION
  Report Type: 
  Country: None (occurrence: None)
  Receive Date: 20091009
  Receipt Date: 20090928
  Transmission Date: 20100525
  Serious: Yes (Other)
  Sender: FDA-Public Use
  Company Number: 8051884

PATIENT
  Age: 41 Year
  Sex: Male

DRUGS (1)
  1. PREDNISOLONE [Suspect]

REACTIONS (3)
  - GASTROENTERITIS NOROVIRUS [None]
  - GRAFT VERSUS HOST DISEASE [None]
  - GRAFT VERSUS HOST DISEASE IN LUNG [None]
